FAERS Safety Report 6608262-7 (Version None)
Quarter: 2010Q1

REPORT INFORMATION
  Report Type: 
  Country: None (occurrence: None)
  Receive Date: 20100301
  Receipt Date: 20100223
  Transmission Date: 20100710
  Serious: Yes (Other)
  Sender: FDA-Public Use
  Company Number: FR-ROCHE-687431

PATIENT
  Age: 5 Year
  Sex: Male

DRUGS (2)
  1. TAMIFLU [Suspect]
     Route: 065
     Dates: start: 20091201
  2. PARACETAMOL [Concomitant]
     Dates: start: 20091201

REACTIONS (2)
  - CONFUSIONAL STATE [None]
  - DELIRIUM [None]
